FAERS Safety Report 4922454-4 (Version None)
Quarter: 2006Q1

REPORT INFORMATION
  Report Type: 
  Country: None (occurrence: None)
  Receive Date: 20060224
  Receipt Date: 20060215
  Transmission Date: 20060701
  Serious: Yes (Hospitalization)
  Sender: FDA-Public Use
  Company Number: 2006PK00382

PATIENT
  Age: 18907 Day
  Sex: Female

DRUGS (3)
  1. NOLVADEX [Suspect]
     Indication: BREAST CANCER
     Route: 048
     Dates: start: 20040701
  2. ZOLADEX [Suspect]
     Indication: BREAST CANCER
     Route: 058
     Dates: start: 20040701
  3. ZOMETA [Suspect]
     Indication: BREAST CANCER
     Route: 042
     Dates: start: 20040701

REACTIONS (2)
  - CERVICAL POLYP [None]
  - ENDOMETRIAL HYPERPLASIA [None]
